FAERS Safety Report 9931842 (Version 2)
Quarter: 2014Q1

REPORT INFORMATION
  Report Type: Report from Study
  Country: CN (occurrence: CN)
  Receive Date: 20140228
  Receipt Date: 20140317
  Transmission Date: 20141002
  Serious: Yes (Life-Threatening, Hospitalization)
  Sender: FDA-Public Use
  Company Number: CN-ROCHE-1355401

PATIENT
  Age: 70 Year
  Sex: Female
  Weight: 44 kg

DRUGS (12)
  1. PARACETAMOL [Concomitant]
     Indication: ALLERGY PROPHYLAXIS
     Route: 065
     Dates: start: 20140213, end: 20140213
  2. SOLU-MEDROL [Concomitant]
     Indication: ALLERGY PROPHYLAXIS
     Route: 065
     Dates: start: 20140213, end: 20140213
  3. TROPISETRON HYDROCHLORIDE [Concomitant]
     Indication: PROPHYLAXIS OF NAUSEA AND VOMITING
     Route: 065
     Dates: start: 20140214, end: 20140214
  4. TROPISETRON HYDROCHLORIDE [Concomitant]
     Indication: PROPHYLAXIS OF NAUSEA AND VOMITING
  5. CIMETIDINE [Concomitant]
     Indication: PROPHYLAXIS
     Route: 065
     Dates: start: 20140214, end: 20140214
  6. FUROSEMIDE [Concomitant]
     Indication: POLYURIA
     Route: 065
     Dates: start: 20140214, end: 20140214
  7. OMEPRAZOLE SODIUM [Concomitant]
     Indication: PROPHYLAXIS
     Route: 065
     Dates: start: 20140214, end: 20140214
  8. OBINUTUZUMAB [Suspect]
     Indication: DIFFUSE LARGE B-CELL LYMPHOMA
     Dosage: LAST VOLUME: 250 ML, LAST DOSE CONCENTRATION: 4 MG/ML
     Route: 042
     Dates: start: 20140213
  9. CYCLOPHOSPHAMIDE [Suspect]
     Indication: DIFFUSE LARGE B-CELL LYMPHOMA
     Dosage: LAST DOSE PRIOR TO SAE: 14 FEB 2014, LAST DOSE: 1000 MG
     Route: 042
     Dates: start: 20140214
  10. DOXORUBICIN [Suspect]
     Indication: DIFFUSE LARGE B-CELL LYMPHOMA
     Dosage: LAST DOSE PRIOR TO SAE: 14 FEB 2014, LAST DOSE: 68 MG
     Route: 042
     Dates: start: 20140214
  11. VINCRISTINE [Suspect]
     Indication: DIFFUSE LARGE B-CELL LYMPHOMA
     Dosage: LAST DOSE PRIOR TO SAE: 14 FEB 2014, LAST DOSE: 1.9 MG
     Route: 050
     Dates: start: 20140214
  12. PREDNISONE [Suspect]
     Indication: DIFFUSE LARGE B-CELL LYMPHOMA
     Dosage: LAST DOSE PRIOR TO SAE: 18 FEB 2014, LAST DOSE: 100 MG
     Route: 048
     Dates: start: 20130214

REACTIONS (2)
  - Febrile neutropenia [Not Recovered/Not Resolved]
  - Pneumonia [Recovered/Resolved]
